FAERS Safety Report 7581213-7 (Version None)
Quarter: 2011Q2

REPORT INFORMATION
  Report Type: 
  Country: None (occurrence: None)
  Receive Date: 20110629
  Receipt Date: 20110620
  Transmission Date: 20111010
  Serious: Yes (Hospitalization)
  Sender: FDA-Public Use
  Company Number: DE-UCBSA-032815

PATIENT
  Sex: Female
  Weight: 72 kg

DRUGS (13)
  1. SIMVABETA [Concomitant]
     Indication: HYPERLIPIDAEMIA
     Dates: start: 20060101
  2. MARCUMAR [Concomitant]
     Indication: PULMONARY EMBOLISM
     Dosage: DOSE: ACCORDING TO QUICK'S
     Dates: start: 20040101
  3. BISOPROLOL FUMARATE [Concomitant]
     Indication: HYPERTENSION
     Dates: start: 20101101
  4. PREDNISONE [Concomitant]
     Indication: RHEUMATOID ARTHRITIS
     Dates: start: 20060101
  5. OMEPRAZOLE [Concomitant]
     Indication: GASTRITIS
     Dates: start: 20060101
  6. VALSARTAN [Concomitant]
     Indication: HYPERTENSION
     Dates: start: 20101101
  7. DEKRISTOL [Concomitant]
     Indication: OSTEOPOROSIS PROPHYLAXIS
     Dosage: DOSE: 20,000 IE; FREQ: BIM
     Dates: start: 20101101
  8. ACETAMINOPHEN [Concomitant]
     Indication: SPONDYLOARTHROPATHY
     Dates: start: 20100501
  9. ENBREL [Concomitant]
     Indication: RHEUMATOID ARTHRITIS
     Dates: start: 20090901, end: 20110201
  10. MIRTAZAPINE [Concomitant]
     Indication: DEPRESSION
     Dates: start: 20100901
  11. CERTOLIZUMAB PEGOL [Suspect]
     Indication: RHEUMATOID ARTHRITIS
     Dosage: NO OF DOSES RECEIVED: 3X2 READY TO USE SYRINGE
     Route: 058
     Dates: start: 20110223, end: 20110404
  12. AMLODIPINE [Concomitant]
     Indication: HYPERTENSION
     Dates: start: 20100601
  13. L-THYROX [Concomitant]
     Indication: GOITRE
     Dates: start: 20060101

REACTIONS (1)
  - DRUG ERUPTION [None]
